FAERS Safety Report 18332031 (Version 2)
Quarter: 2020Q4

REPORT INFORMATION
  Report Type: Report from Study
  Country: US (occurrence: US)
  Receive Date: 20200930
  Receipt Date: 20201008
  Transmission Date: 20210113
  Serious: Yes (Other)
  Sender: FDA-Public Use
  Company Number: US-PFIZER INC-2020375088

PATIENT
  Age: 25 Year
  Sex: Female

DRUGS (6)
  1. MEPERIDINE HCL [Suspect]
     Active Substance: MEPERIDINE HYDROCHLORIDE
     Indication: SKIN ULCER
     Dosage: 75 MG (EVERY 3 HOURS)
     Route: 030
  2. AZATHIOPRINE. [Concomitant]
     Active Substance: AZATHIOPRINE
     Dosage: UNK
  3. DIAZEPAM. [Concomitant]
     Active Substance: DIAZEPAM
  4. PREDNISOLONE. [Concomitant]
     Active Substance: PREDNISOLONE
  5. IMIPRAMINE [Concomitant]
     Active Substance: IMIPRAMINE
  6. HALOPERIDOL. [Concomitant]
     Active Substance: HALOPERIDOL

REACTIONS (2)
  - Neurotoxicity [Recovered/Resolved]
  - Seizure [Recovered/Resolved]
